FAERS Safety Report 9409375 (Version 2)
Quarter: 2013Q2

REPORT INFORMATION
  Report Type: Spontaneous
  Country: US (occurrence: None)
  Receive Date: 20130418
  Receipt Date: 20130509
  Transmission Date: 20140414
  Serious: Yes (Hospitalization)
  Sender: FDA-Public Use
  Company Number: SPI201300226

PATIENT
  Sex: Female

DRUGS (2)
  1. AMITIZA [Suspect]
     Indication: CONSTIPATION
     Route: 048
     Dates: start: 201303
  2. IBUPROFEN (IBUPROFEN) [Suspect]

REACTIONS (2)
  - Intestinal perforation [None]
  - Gastric ulcer [None]
